FAERS Safety Report 22074183 (Version 1)
Quarter: 2023Q1

REPORT INFORMATION
  Report Type: Spontaneous
  Country: DE (occurrence: DE)
  Receive Date: 20230308
  Receipt Date: 20230308
  Transmission Date: 20230417
  Serious: Yes (Other)
  Sender: FDA-Public Use
  Company Number: DE-CHEPLA-2023002039

PATIENT
  Age: 31 Year
  Sex: Female
  Weight: 115 kg

DRUGS (5)
  1. ESCITALOPRAM [Suspect]
     Active Substance: ESCITALOPRAM OXALATE
     Indication: Depression
     Dosage: 20 MG, QD ,TREATED UNTIL GW 7 OR 8 (0 - 41.4.GW)
     Route: 048
     Dates: start: 20210423
  2. ESCITALOPRAM [Suspect]
     Active Substance: ESCITALOPRAM OXALATE
     Dosage: 5 MG, QD ,TREATED UNTIL GW 7 OR 8 (0 - 41.4.GW)
     Route: 048
     Dates: end: 20220208
  3. CANDESARTAN [Suspect]
     Active Substance: CANDESARTAN
     Indication: Hypertension
     Dosage: 16 MILLIGRAM, QD,0 - 7.4 GESTATIONAL WEEK
     Route: 048
     Dates: start: 20210423, end: 20210615
  4. INDAPAMIDE [Suspect]
     Active Substance: INDAPAMIDE
     Indication: Hypertension
     Dosage: 1.5 MILLIGRAM, QD, 0- 7.4 GESTATIONAL WEEK
     Route: 048
     Dates: start: 20210423, end: 20210616
  5. ASPIRIN [Suspect]
     Active Substance: ASPIRIN
     Indication: Prophylaxis
     Dosage: 150 MILLIGRAM, QD,9-36 GESTATIONAL WEEK
     Route: 048

REACTIONS (2)
  - Exposure during pregnancy [Recovered/Resolved]
  - Contraindicated product administered [Unknown]

NARRATIVE: CASE EVENT DATE: 20210423
